FAERS Safety Report 20630360 (Version 1)
Quarter: 2022Q1

REPORT INFORMATION
  Report Type: Spontaneous
  Country: FR (occurrence: FR)
  Receive Date: 20220324
  Receipt Date: 20220324
  Transmission Date: 20220423
  Serious: Yes (Life-Threatening)
  Sender: FDA-Public Use
  Company Number: None

PATIENT
  Age: 68 Year
  Sex: Male
  Weight: 66 kg

DRUGS (11)
  1. PROPRANOLOL [Suspect]
     Active Substance: PROPRANOLOL HYDROCHLORIDE
     Indication: Atrial fibrillation
     Dosage: UNIT DOSE: 80 MG
     Route: 048
     Dates: end: 20220112
  2. DIGOXIN [Suspect]
     Active Substance: DIGOXIN
     Indication: Atrial fibrillation
     Dosage: UNIT DOSE: 1 DF
     Route: 048
     Dates: start: 20191010, end: 20220112
  3. SIMVASTATIN [Concomitant]
     Active Substance: SIMVASTATIN
     Dosage: UNIT DOSE: 20 MG
  4. POLYETHYLENE GLYCOL 4000 [Concomitant]
     Active Substance: POLYETHYLENE GLYCOL 4000
  5. CHOLECALCIFEROL [Concomitant]
     Active Substance: CHOLECALCIFEROL
  6. OXYCODONE HYDROCHLORIDE [Concomitant]
     Active Substance: OXYCODONE HYDROCHLORIDE
  7. ELIQUIS [Concomitant]
     Active Substance: APIXABAN
  8. OXYCONTIN [Concomitant]
     Active Substance: OXYCODONE HYDROCHLORIDE
     Dosage: PROLONGED-RELEASE FILM-COATED TABLET, UNIT DOSE: 2 DF
  9. LERCANIDIPINE [Concomitant]
     Active Substance: LERCANIDIPINE
  10. SPIRIVA [Concomitant]
     Active Substance: TIOTROPIUM BROMIDE MONOHYDRATE
  11. DOLIPRANE [Concomitant]
     Active Substance: ACETAMINOPHEN

REACTIONS (3)
  - Diarrhoea [Recovered/Resolved]
  - Atrioventricular block [Recovered/Resolved]
  - Vomiting [Recovered/Resolved]

NARRATIVE: CASE EVENT DATE: 20220109
